FAERS Safety Report 23938954 (Version 1)
Quarter: 2024Q2

REPORT INFORMATION
  Report Type: Report from Study
  Country: US (occurrence: US)
  Receive Date: 20240604
  Receipt Date: 20240604
  Transmission Date: 20240716
  Serious: Yes (Other)
  Sender: FDA-Public Use
  Company Number: US-ABBVIE-5783871

PATIENT
  Sex: Male

DRUGS (2)
  1. SKYRIZI [Suspect]
     Active Substance: RISANKIZUMAB-RZAA
     Indication: Crohn^s disease
     Route: 058
  2. SKYRIZI [Suspect]
     Active Substance: RISANKIZUMAB-RZAA
     Route: 058

REACTIONS (12)
  - Vitreous floaters [Unknown]
  - Abdominal pain [Unknown]
  - Nephrolithiasis [Recovered/Resolved]
  - Inflammatory marker increased [Unknown]
  - Anal incontinence [Not Recovered/Not Resolved]
  - Haemorrhoids [Unknown]
  - Diverticulitis [Unknown]
  - Food intolerance [Unknown]
  - Eye haemorrhage [Unknown]
  - Frequent bowel movements [Unknown]
  - Food poisoning [Unknown]
  - Diarrhoea [Unknown]
